FAERS Safety Report 7059599-1 (Version None)
Quarter: 2010Q4

REPORT INFORMATION
  Report Type: 
  Country: None (occurrence: None)
  Receive Date: 20101025
  Receipt Date: 20101015
  Transmission Date: 20110411
  Serious: Yes (Other)
  Sender: FDA-Public Use
  Company Number: CN-ASTRAZENECA-2010SE47636

PATIENT
  Age: 5 Year

DRUGS (3)
  1. PULMICORT AEROSOL [Suspect]
     Indication: ASTHMA
     Route: 055
     Dates: start: 20071201, end: 20100401
  2. FLIXOTIDE AEROSOL [Suspect]
     Indication: ASTHMA
     Dosage: 125-250 UG DAILY
     Route: 055
     Dates: start: 20100401, end: 20100901
  3. NASONEX [Concomitant]
     Indication: RHINITIS
     Route: 045

REACTIONS (2)
  - OSTEONECROSIS [None]
  - PAIN IN EXTREMITY [None]
